FAERS Safety Report 7544467-9 (Version None)
Quarter: 2011Q2

REPORT INFORMATION
  Report Type: 
  Country: None (occurrence: None)
  Receive Date: 20110613
  Receipt Date: 20100305
  Transmission Date: 20111010
  Serious: Yes (Other)
  Sender: FDA-Public Use
  Company Number: PHHY2010JP14402

PATIENT
  Age: 44 Year
  Sex: Female

DRUGS (4)
  1. SANDOSTATIN LAR [Suspect]
     Indication: ACROMEGALY
     Dosage: 20 MG, QMO
     Route: 030
     Dates: start: 20040722, end: 20040922
  2. THYRADIN [Concomitant]
     Dosage: 200 UG, UNK
     Route: 048
     Dates: start: 20000101
  3. FERROUS CITRATE [Concomitant]
     Dosage: 50 MG, UNK
     Route: 048
     Dates: start: 20000101
  4. SANDOSTATIN LAR [Suspect]
     Dosage: 30 MG, QMO
     Route: 030
     Dates: start: 20041027

REACTIONS (3)
  - LUMBAR VERTEBRAL FRACTURE [None]
  - FALL [None]
  - FOREARM FRACTURE [None]
